FAERS Safety Report 7657747-3 (Version None)
Quarter: 2011Q3

REPORT INFORMATION
  Report Type: 
  Country: None (occurrence: None)
  Receive Date: 20110804
  Receipt Date: 20110705
  Transmission Date: 20111222
  Serious: No
  Sender: FDA-Public Use
  Company Number: US-BAYER-2011-059828

PATIENT
  Age: 84 Year
  Sex: Female
  Weight: 100 kg

DRUGS (12)
  1. OMEGA-3 FORTE [Concomitant]
  2. ALEVE (CAPLET) [Suspect]
     Indication: BACK PAIN
     Dosage: 2 TABLETS, ONCE DAILY WITH FOOD
  3. METHYLDOPA [Concomitant]
  4. ACETYLSALICYLIC ACID SRT [Concomitant]
  5. GARLIC [Concomitant]
  6. SIMVASTATIN [Concomitant]
  7. SUPER B COMPLEX [Concomitant]
  8. MULTI-VITAMIN [Concomitant]
  9. MAGNESIUM [Concomitant]
  10. GLIPIZIDE [Concomitant]
  11. POTASSIUM [Concomitant]
  12. VITAMIN E [Concomitant]

REACTIONS (2)
  - DRUG INEFFECTIVE [None]
  - NO ADVERSE EVENT [None]
